FAERS Safety Report 23949123 (Version 1)
Quarter: 2024Q2

REPORT INFORMATION
  Report Type: Spontaneous
  Country: CN (occurrence: CN)
  Receive Date: 20240607
  Receipt Date: 20240607
  Transmission Date: 20240715
  Serious: Yes (Other)
  Sender: FDA-Public Use
  Company Number: CN-ROCHE-2293428

PATIENT
  Age: 48 Year
  Sex: Female

DRUGS (18)
  1. CAPECITABINE [Suspect]
     Active Substance: CAPECITABINE
     Indication: Colon cancer
     Dosage: XELOX FOR TRANSFORMATION THERAPY FOR 4 CYCLES?2.0 ONCE IN THE MORNING 1.5 ONCE IN THE EVENING, T...
     Route: 048
     Dates: start: 201608, end: 201612
  2. CAPECITABINE [Suspect]
     Active Substance: CAPECITABINE
     Indication: Metastases to liver
     Dosage: XELOX FOR TRANSFORMATION THERAPY FOR 4 CYCLES?2.0 ONCE IN THE MORNING 1.5 ONCE IN THE EVENING, T...
     Route: 048
     Dates: start: 201608, end: 201612
  3. CAPECITABINE [Suspect]
     Active Substance: CAPECITABINE
     Indication: Metastases to spleen
     Dosage: XELOX FOR TRANSFORMATION THERAPY FOR 4 CYCLES?2.0 ONCE IN THE MORNING 1.5 ONCE IN THE EVENING, T...
     Route: 048
     Dates: start: 201608, end: 201612
  4. CAPECITABINE [Suspect]
     Active Substance: CAPECITABINE
     Indication: Colon cancer
     Route: 048
     Dates: start: 201608, end: 201703
  5. CAPECITABINE [Suspect]
     Active Substance: CAPECITABINE
     Indication: Metastases to liver
     Route: 048
     Dates: start: 201608, end: 201703
  6. CAPECITABINE [Suspect]
     Active Substance: CAPECITABINE
     Indication: Metastases to spleen
     Route: 048
     Dates: start: 201608, end: 201703
  7. CAPECITABINE [Suspect]
     Active Substance: CAPECITABINE
     Indication: Colon cancer
     Dosage: 2 CYCLES OF XELOX?2.0 IN THE MORNING, 1.5 IN THE EVENING, TWICE A DAY
     Route: 048
     Dates: start: 201611, end: 201701
  8. CAPECITABINE [Suspect]
     Active Substance: CAPECITABINE
     Indication: Metastases to liver
     Dosage: 2 CYCLES OF XELOX?2.0 IN THE MORNING, 1.5 IN THE EVENING, TWICE A DAY
     Route: 048
     Dates: start: 201611, end: 201701
  9. CAPECITABINE [Suspect]
     Active Substance: CAPECITABINE
     Indication: Metastases to spleen
     Dosage: 2 CYCLES OF XELOX?2.0 IN THE MORNING, 1.5 IN THE EVENING, TWICE A DAY
     Route: 048
     Dates: start: 201611, end: 201701
  10. OXALIPLATIN [Suspect]
     Active Substance: OXALIPLATIN
     Indication: Metastases to liver
     Dosage: XELOX FOR TRANSFORMATION THERAPY FOR 4 CYCLES
     Route: 042
     Dates: start: 201608, end: 201612
  11. OXALIPLATIN [Suspect]
     Active Substance: OXALIPLATIN
     Indication: Metastases to spleen
     Dosage: XELOX FOR TRANSFORMATION THERAPY FOR 4 CYCLES
     Route: 042
     Dates: start: 201608, end: 201612
  12. OXALIPLATIN [Suspect]
     Active Substance: OXALIPLATIN
     Indication: Colon cancer
     Dosage: XELOX FOR TRANSFORMATION THERAPY FOR 4 CYCLES
     Route: 042
     Dates: start: 201608, end: 201612
  13. OXALIPLATIN [Suspect]
     Active Substance: OXALIPLATIN
     Indication: Metastases to liver
     Dosage: DAY1
     Route: 042
     Dates: start: 201608, end: 201703
  14. OXALIPLATIN [Suspect]
     Active Substance: OXALIPLATIN
     Indication: Metastases to spleen
     Dosage: DAY1
     Route: 042
     Dates: start: 201608, end: 201703
  15. OXALIPLATIN [Suspect]
     Active Substance: OXALIPLATIN
     Indication: Colon cancer
     Dosage: DAY1
     Route: 042
     Dates: start: 201608, end: 201703
  16. OXALIPLATIN [Suspect]
     Active Substance: OXALIPLATIN
     Indication: Metastases to liver
     Dosage: 2 CYCLES OF XELOX
     Route: 042
     Dates: start: 201611, end: 201701
  17. OXALIPLATIN [Suspect]
     Active Substance: OXALIPLATIN
     Indication: Metastases to spleen
     Dosage: 2 CYCLES OF XELOX
     Route: 042
     Dates: start: 201611, end: 201701
  18. OXALIPLATIN [Suspect]
     Active Substance: OXALIPLATIN
     Indication: Colon cancer
     Dosage: 2 CYCLES OF XELOX
     Route: 042
     Dates: start: 201611, end: 201701

REACTIONS (8)
  - Myelosuppression [Recovering/Resolving]
  - Ascites [Unknown]
  - Hepatic function abnormal [Recovering/Resolving]
  - Gastrointestinal disorder [Recovering/Resolving]
  - Hepatic lesion [Recovering/Resolving]
  - Thymus enlargement [Unknown]
  - Pulmonary mass [Unknown]
  - Disease progression [Recovering/Resolving]
